FAERS Safety Report 13425125 (Version 2)
Quarter: 2017Q3

REPORT INFORMATION
  Report Type: Spontaneous
  Country: JP (occurrence: JP)
  Receive Date: 20170411
  Receipt Date: 20170906
  Transmission Date: 20171127
  Serious: Yes (Hospitalization, Other)
  Sender: FDA-Public Use
  Company Number: JP-AMGEN-JPNSP2017054521

PATIENT
  Age: 81 Year
  Sex: Male

DRUGS (15)
  1. URSODEOXYCHOLIC ACID [Concomitant]
     Active Substance: URSODIOL
     Dosage: UNK
     Dates: start: 20170325, end: 20170401
  2. KYPROLIS [Suspect]
     Active Substance: CARFILZOMIB
     Indication: PLASMA CELL MYELOMA
     Dosage: 30 MG, UNK
     Route: 041
     Dates: start: 20170322, end: 20170323
  3. AMBISOME [Concomitant]
     Active Substance: AMPHOTERICIN B
     Dosage: UNK
     Dates: start: 20170306, end: 20170328
  4. FILGRASTIM [Concomitant]
     Active Substance: FILGRASTIM
     Dosage: 75 MUG, UNK
     Dates: start: 20170328, end: 20170404
  5. LENADEX [Concomitant]
     Active Substance: DEXAMETHASONE ACETATE
     Dosage: UNK
     Dates: start: 20120515, end: 20170402
  6. VALACICLOVIR [Concomitant]
     Active Substance: VALACYCLOVIR HYDROCHLORIDE
     Dosage: UNK
     Dates: start: 20170327, end: 20170401
  7. FILGRASTIM [Concomitant]
     Active Substance: FILGRASTIM
     Indication: WHITE BLOOD CELL COUNT DECREASED
     Dosage: 150 MUG, UNK
     Dates: start: 20170323, end: 20170327
  8. BAKTAR [Concomitant]
     Active Substance: SULFAMETHOXAZOLE\TRIMETHOPRIM
     Dosage: UNK
     Dates: start: 20170327, end: 20170401
  9. LYRICA [Concomitant]
     Active Substance: PREGABALIN
     Dosage: UNK
     Dates: start: 20170321, end: 20170401
  10. REVLIMID [Concomitant]
     Active Substance: LENALIDOMIDE
     Dosage: UNK
     Dates: start: 20130724, end: 20170329
  11. BFLUID [Concomitant]
     Active Substance: AMINO ACIDS\DEXTROSE\ELECTROLYTES NOS\VITAMINS
     Dosage: UNK
     Dates: start: 20170329, end: 20170331
  12. AMBISOME [Concomitant]
     Active Substance: AMPHOTERICIN B
     Dosage: UNK
     Dates: start: 20170329, end: 20170331
  13. KYPROLIS [Suspect]
     Active Substance: CARFILZOMIB
     Dosage: 40 MG, UNK
     Route: 041
     Dates: start: 20170329, end: 20170330
  14. OMEGACIN [Concomitant]
     Active Substance: BIAPENEM
     Dosage: UNK
     Dates: start: 20170313, end: 20170326
  15. GLUACETO 35 [Concomitant]
     Dosage: UNK
     Dates: start: 20170329, end: 20170331

REACTIONS (4)
  - Blood creatinine decreased [Not Recovered/Not Resolved]
  - Platelet count decreased [Not Recovered/Not Resolved]
  - Anaemia [Unknown]
  - White blood cell count decreased [Recovered/Resolved]

NARRATIVE: CASE EVENT DATE: 20170322
